FAERS Safety Report 9049708 (Version 2)
Quarter: 2013Q2

REPORT INFORMATION
  Report Type: Spontaneous
  Country: DE (occurrence: DE)
  Receive Date: 20130205
  Receipt Date: 20130409
  Transmission Date: 20140414
  Serious: Yes (Life-Threatening, Hospitalization, Disabling, Other)
  Sender: FDA-Public Use
  Company Number: DE-ASTRAZENECA-2013SE07003

PATIENT
  Age: 713 Month
  Sex: Male

DRUGS (10)
  1. BRILIQUE [Suspect]
     Indication: ACUTE CORONARY SYNDROME
     Route: 048
     Dates: start: 20120714
  2. BRILIQUE [Suspect]
     Indication: CARDIAC FAILURE
     Route: 048
     Dates: start: 20120714
  3. RAMIPRIL [Suspect]
     Route: 048
     Dates: start: 20120715
  4. ATORVASTATIN [Suspect]
     Route: 048
  5. EZETROL [Suspect]
     Route: 048
     Dates: start: 20120715
  6. CARMEN [Suspect]
     Route: 048
     Dates: start: 20120715
  7. ASS [Concomitant]
     Route: 048
     Dates: start: 20120714
  8. METOPROLOL [Concomitant]
     Route: 048
     Dates: start: 20120715
  9. PANTOPRAZOLE [Concomitant]
     Route: 048
     Dates: start: 20120715
  10. FUROSEMIDE [Concomitant]
     Route: 048
     Dates: start: 20120715

REACTIONS (4)
  - Acute hepatic failure [Recovered/Resolved with Sequelae]
  - Hepatic necrosis [Recovered/Resolved with Sequelae]
  - Chronic hepatitis [Unknown]
  - Hepatic fibrosis [Unknown]
